FAERS Safety Report 8935689 (Version 2)
Quarter: 2012Q4

REPORT INFORMATION
  Report Type: 
  Country: GB (occurrence: GB)
  Receive Date: 20121130
  Receipt Date: 20121213
  Transmission Date: 20130627
  Serious: Yes (Hospitalization, Other)
  Sender: FDA-Public Use
  Company Number: GB-AMGEN-GBRSP2012076166

PATIENT
  Age: 48 Year
  Sex: Male
  Weight: 77 kg

DRUGS (17)
  1. XGEVA [Suspect]
     Indication: PROPHYLAXIS
     Dosage: 120 mg, q4wk
     Route: 058
     Dates: start: 20121005, end: 20121102
  2. XGEVA [Suspect]
     Indication: METASTASES TO BONE
  3. EPIRUBICIN [Concomitant]
     Indication: GASTRIC CANCER
     Dosage: 100 mg, per chemo regim
     Route: 040
     Dates: start: 20121005, end: 20121026
  4. OXALIPLATIN [Concomitant]
     Indication: GASTRIC CANCER
     Dosage: 260 mg, per chemo regim
     Route: 042
     Dates: start: 20121005
  5. CAPECITABINE [Concomitant]
     Indication: GASTRIC CANCER
     Dosage: 1250 mg, bid
     Route: 048
     Dates: start: 20121005
  6. TRASTUZUMAB [Concomitant]
     Indication: GASTRIC CANCER
     Dosage: UNK UNK, per chemo regim
     Route: 042
     Dates: start: 20121026
  7. MAGNESIUM [Concomitant]
     Indication: SUPPORTIVE CARE
     Dosage: UNK UNK, per chemo regim
     Route: 042
     Dates: start: 20121005
  8. CALCIUM [Concomitant]
     Indication: SUPPORTIVE CARE
     Dosage: UNK UNK, per chemo regim
     Route: 042
     Dates: start: 20121005
  9. APREPITANT [Concomitant]
     Indication: ANTIEMETIC SUPPORTIVE CARE
     Dosage: UNK UNK, qd
     Route: 048
     Dates: start: 20121005
  10. GRANISETRON [Concomitant]
     Indication: ANTIEMETIC SUPPORTIVE CARE
     Dosage: 1 mg, UNK
     Route: 042
     Dates: start: 20121005
  11. DEXAMETHASONE [Concomitant]
     Indication: ANTIEMETIC SUPPORTIVE CARE
     Dosage: 18 mg, UNK
     Route: 042
     Dates: start: 20121005
  12. DEXAMETHASONE [Concomitant]
     Dosage: 2 mg, UNK
     Route: 048
     Dates: start: 20121005
  13. DOMPERIDONE [Concomitant]
     Indication: ANTIEMETIC SUPPORTIVE CARE
     Dosage: 10 mg, UNK
     Route: 048
     Dates: start: 20121005
  14. OXYCONTIN [Concomitant]
     Indication: PAIN
     Dosage: 30 mg, bid
     Route: 048
  15. OXYNORM [Concomitant]
     Indication: PAIN
     Dosage: 10 mg, prn
     Route: 048
  16. DOCUSATE [Concomitant]
     Indication: CONSTIPATION
     Dosage: 200 mg, prn
     Route: 048
  17. MOVICOL                            /01625101/ [Concomitant]
     Indication: CONSTIPATION

REACTIONS (5)
  - Hypoaesthesia [Recovering/Resolving]
  - Paraesthesia [Recovering/Resolving]
  - Pain in extremity [Recovered/Resolved]
  - Hypocalcaemia [Recovering/Resolving]
  - Temperature intolerance [Unknown]
